FAERS Safety Report 8862069 (Version 2)
Quarter: 2012Q4

REPORT INFORMATION
  Report Type: 
  Country: JP (occurrence: JP)
  Receive Date: 20121026
  Receipt Date: 20121106
  Transmission Date: 20130627
  Serious: Yes (Other)
  Sender: FDA-Public Use
  Company Number: JP-ELI_LILLY_AND_COMPANY-JP201210002427

PATIENT
  Age: 56 Year
  Sex: Female
  Weight: 57.6 kg

DRUGS (18)
  1. GEMZAR [Suspect]
     Indication: OVARIAN CANCER STAGE III
     Dosage: 1185 mg, other
     Route: 042
     Dates: start: 20120822
  2. GEMZAR [Suspect]
     Dosage: 1185 mg, other
     Route: 042
  3. PARAPLATIN [Concomitant]
     Indication: OVARIAN CANCER STAGE III
     Dosage: 4 DF, other
     Route: 042
     Dates: start: 20120822
  4. DECADRON                           /00016001/ [Concomitant]
  5. KYTRIL [Concomitant]
  6. PAXIL [Concomitant]
  7. DEPAS [Concomitant]
  8. MEILAX [Concomitant]
  9. MYSLEE [Concomitant]
  10. ROHYPNOL [Concomitant]
  11. CALONAL [Concomitant]
  12. BUFFERIN                                /JPN/ [Concomitant]
  13. NAUZELIN [Concomitant]
  14. CINAL [Concomitant]
  15. TRAMAL [Concomitant]
  16. NOVAMIN [Concomitant]
  17. ALOSENN                            /00476901/ [Concomitant]
  18. AZUNOL [Concomitant]
     Route: 050

REACTIONS (1)
  - Pleural effusion [Recovering/Resolving]
